FAERS Safety Report 10350920 (Version 2)
Quarter: 2014Q4

REPORT INFORMATION
  Report Type: Spontaneous
  Country: FR (occurrence: FR)
  Receive Date: 20140730
  Receipt Date: 20141230
  Transmission Date: 20150528
  Serious: Yes (Hospitalization)
  Sender: FDA-Public Use
  Company Number: FR-PFIZER INC-2014210083

PATIENT
  Age: 85 Year
  Sex: Female

DRUGS (12)
  1. STILNOX [Concomitant]
     Active Substance: ZOLPIDEM TARTRATE
     Dosage: UNK
  2. LASILIX [Concomitant]
     Active Substance: FUROSEMIDE
  3. CORDARONE [Suspect]
     Active Substance: AMIODARONE HYDROCHLORIDE
     Indication: ATRIAL FIBRILLATION
     Dosage: 200 MG, DAILY
     Route: 048
     Dates: end: 20140616
  4. LOVENOX [Interacting]
     Active Substance: ENOXAPARIN SODIUM
     Indication: MYOCARDIAL INFARCTION
     Dosage: 0.5 ML, 2X/DAY
     Route: 058
     Dates: start: 20140608, end: 20140614
  5. TAHOR [Concomitant]
     Active Substance: ATORVASTATIN CALCIUM
  6. CARDENSIEL [Concomitant]
     Active Substance: BISOPROLOL FUMARATE
  7. PREVISCAN [Interacting]
     Active Substance: FLUINDIONE
     Dosage: 5 MG, DAILY
     Route: 048
     Dates: start: 20140612, end: 20140614
  8. TRIATEC [Concomitant]
     Active Substance: RAMIPRIL
  9. INEXIUM [Concomitant]
     Active Substance: ESOMEPRAZOLE
  10. KARDEGIC [Interacting]
     Active Substance: ASPIRIN LYSINE
     Indication: MYOCARDIAL INFARCTION
     Dosage: 75 MG, DAILY
     Route: 048
     Dates: start: 20140608
  11. PLAVIX [Interacting]
     Active Substance: CLOPIDOGREL BISULFATE
     Indication: MYOCARDIAL INFARCTION
     Dosage: 75 MG, DAILY
     Route: 048
     Dates: start: 20140608, end: 20140616
  12. PREVISCAN [Interacting]
     Active Substance: FLUINDIONE
     Indication: ATRIAL FIBRILLATION
     Dosage: 5 MG, DAILY
     Route: 048
     Dates: start: 201211, end: 20140608

REACTIONS (3)
  - Abdominal wall haematoma [Recovered/Resolved]
  - Anaemia [Recovered/Resolved]
  - Drug interaction [Unknown]

NARRATIVE: CASE EVENT DATE: 20140614
